FAERS Safety Report 5688789-5 (Version None)
Quarter: 2008Q1

REPORT INFORMATION
  Report Type: 
  Country: None (occurrence: None)
  Receive Date: 20080331
  Receipt Date: 20080319
  Transmission Date: 20080703
  Serious: Yes (Other)
  Sender: FDA-Public Use
  Company Number: US-AMGEN-QUU270396

PATIENT
  Sex: Female

DRUGS (20)
  1. ENBREL [Suspect]
     Indication: RHEUMATOID ARTHRITIS
     Dates: start: 20060320, end: 20071109
  2. ADVAIR DISKUS 100/50 [Concomitant]
  3. ALBUTEROL [Concomitant]
  4. CITRACAL [Concomitant]
  5. CLARITHROMYCIN [Concomitant]
  6. DUONEB [Concomitant]
  7. FUROSEMIDE [Concomitant]
  8. ISOSORBIDE DINITRATE [Concomitant]
  9. KLOR-CON [Concomitant]
  10. LIPITOR [Concomitant]
  11. LISINOPRIL AND HYDROCHLOROTHIAZIDE [Concomitant]
  12. METAMUCIL [Concomitant]
  13. NEURONTIN [Concomitant]
  14. PROTONIX [Concomitant]
  15. SINGULAIR [Concomitant]
  16. TYLENOL (CAPLET) [Concomitant]
  17. WARFARIN SODIUM [Concomitant]
  18. METHOTREXATE [Concomitant]
  19. LEUCOVORIN CALCIUM [Concomitant]
  20. PREDNISONE TAB [Concomitant]

REACTIONS (4)
  - DEPRESSION [None]
  - DIZZINESS [None]
  - MACULAR DEGENERATION [None]
  - RHEUMATOID ARTHRITIS [None]
